FAERS Safety Report 5065561-0 (Version None)
Quarter: 2006Q3

REPORT INFORMATION
  Report Type: 
  Country: None (occurrence: None)
  Receive Date: 20060731
  Receipt Date: 20060712
  Transmission Date: 20061208
  Serious: Yes (Hospitalization, Other)
  Sender: FDA-Public Use
  Company Number: PHHO2006JP11433

PATIENT
  Age: 66 Year
  Sex: Male
  Weight: 77 kg

DRUGS (11)
  1. ENTACAPONE [Suspect]
     Indication: PARKINSON'S DISEASE
     Dosage: 800 MG, UNK
     Route: 048
     Dates: start: 20030903
  2. ENTACAPONE [Suspect]
     Route: 048
     Dates: end: 20060716
  3. NEODOPASOL [Suspect]
     Indication: PARKINSON'S DISEASE
     Dosage: 1000 MG, UNK
     Route: 048
     Dates: start: 19960125
  4. FP [Concomitant]
     Indication: PARKINSON'S DISEASE
  5. PARLODEL [Concomitant]
     Indication: PARKINSON'S DISEASE
     Dates: end: 20060712
  6. YODEL S [Concomitant]
     Indication: PARKINSON'S DISEASE
  7. LOXONIN [Concomitant]
     Indication: BACK PAIN
  8. MUCOSTA [Concomitant]
     Indication: GASTRITIS
  9. CYANOCOBALAMIN [Concomitant]
     Indication: HYPOAESTHESIA
  10. OPALMON [Concomitant]
     Indication: HYPOAESTHESIA
  11. PURSENNID [Concomitant]
     Indication: CONSTIPATION

REACTIONS (4)
  - DYSPHONIA [None]
  - LIBIDO INCREASED [None]
  - MOVEMENT DISORDER [None]
  - RESTLESSNESS [None]
